FAERS Safety Report 8125151-X (Version None)
Quarter: 2012Q1

REPORT INFORMATION
  Report Type: 
  Country: None (occurrence: None)
  Receive Date: 20120209
  Receipt Date: 20120207
  Transmission Date: 20120608
  Serious: No
  Sender: FDA-Public Use
  Company Number: US-BAYER-2012-012975

PATIENT
  Age: 44 Year
  Sex: Male

DRUGS (2)
  1. ULTRAVIST 150 [Suspect]
     Indication: COMPUTERISED TOMOGRAM
     Dosage: 80 ML, UNK
     Route: 042
     Dates: start: 20120207, end: 20120207
  2. BARIUM [Concomitant]

REACTIONS (2)
  - URTICARIA [None]
  - PRURITUS GENERALISED [None]
